FAERS Safety Report 6691330-1 (Version None)
Quarter: 2010Q2

REPORT INFORMATION
  Report Type: 
  Country: None (occurrence: None)
  Receive Date: 20100422
  Receipt Date: 20100413
  Transmission Date: 20101027
  Serious: Yes (Hospitalization)
  Sender: FDA-Public Use
  Company Number: BG-JNJFOC-20100303218

PATIENT
  Sex: Male

DRUGS (1)
  1. RISPOLEPT [Suspect]
     Indication: SCHIZOPHRENIA
     Route: 048
     Dates: start: 20010101, end: 20100310

REACTIONS (1)
  - DIABETES INSIPIDUS [None]
